FAERS Safety Report 5762541-4 (Version None)
Quarter: 2008Q2

REPORT INFORMATION
  Report Type: 
  Country: None (occurrence: None)
  Receive Date: 20080609
  Receipt Date: 20080602
  Transmission Date: 20081010
  Serious: Yes (Congenital Anomaly)
  Sender: FDA-Public Use
  Company Number: B0514346A

PATIENT
  Sex: Female

DRUGS (9)
  1. COMBIVIR [Suspect]
     Dates: start: 20060116, end: 20061019
  2. ZELITREX [Suspect]
     Dates: start: 20060915, end: 20061019
  3. VIRACEPT [Suspect]
     Dates: start: 20060116, end: 20061019
  4. CLAMOXYL [Concomitant]
     Indication: DRUG USE FOR UNKNOWN INDICATION
  5. MAXILASE [Concomitant]
     Indication: DRUG USE FOR UNKNOWN INDICATION
  6. SMECTA [Concomitant]
     Indication: DRUG USE FOR UNKNOWN INDICATION
  7. LOCABIOTAL [Concomitant]
     Indication: DRUG USE FOR UNKNOWN INDICATION
  8. TARDYFERON B9 [Concomitant]
     Indication: DRUG USE FOR UNKNOWN INDICATION
  9. ACETAMINOPHEN [Concomitant]
     Indication: DRUG USE FOR UNKNOWN INDICATION

REACTIONS (11)
  - CEREBRAL VENTRICLE DILATATION [None]
  - CLEFT PALATE [None]
  - DRUG EXPOSURE DURING PREGNANCY [None]
  - DYSPHAGIA [None]
  - FEEDING DISORDER NEONATAL [None]
  - FOETAL GROWTH RETARDATION [None]
  - HYPOTONIA [None]
  - MITOCHONDRIAL CYTOPATHY [None]
  - NERVOUS SYSTEM DISORDER [None]
  - POLYHYDRAMNIOS [None]
  - RETROGNATHIA [None]
